FAERS Safety Report 7913974-9 (Version None)
Quarter: 2011Q4

REPORT INFORMATION
  Report Type: 
  Country: None (occurrence: None)
  Receive Date: 20111110
  Receipt Date: 20111104
  Transmission Date: 20120403
  Serious: Yes (Hospitalization)
  Sender: FDA-Public Use
  Company Number: 2006-137976-NL

PATIENT
  Age: 38 Year
  Sex: Female
  Weight: 54.4 kg

DRUGS (4)
  1. ACETAMINOPHEN [Concomitant]
  2. ACETAMINOPHEN [Concomitant]
  3. NUVARING [Suspect]
     Indication: MENSTRUATION IRREGULAR
     Dosage: VAG
     Route: 067
     Dates: start: 20040201, end: 20051001
  4. NUVARING [Suspect]
     Indication: CONTRACEPTION
     Dosage: VAG
     Route: 067
     Dates: start: 20040201, end: 20051001

REACTIONS (14)
  - CEREBROVASCULAR ACCIDENT [None]
  - NAUSEA [None]
  - VERTIGO [None]
  - ATRIAL FIBRILLATION [None]
  - BODY TEMPERATURE INCREASED [None]
  - VOMITING [None]
  - JAUNDICE [None]
  - MUSCULOSKELETAL PAIN [None]
  - DIZZINESS [None]
  - BODY TEMPERATURE DECREASED [None]
  - ABORTION MISSED [None]
  - MATERNAL EXPOSURE DURING PREGNANCY [None]
  - PREGNANCY WITH CONTRACEPTIVE DEVICE [None]
  - VISION BLURRED [None]
